FAERS Safety Report 19942612 (Version 1)
Quarter: 2021Q4

REPORT INFORMATION
  Report Type: Spontaneous
  Country: US (occurrence: US)
  Receive Date: 20211012
  Receipt Date: 20211012
  Transmission Date: 20220303
  Serious: No
  Sender: FDA-Public Use
  Company Number: US-TEVA-2021-US-1962989

PATIENT
  Sex: Female

DRUGS (2)
  1. AJOVY [Suspect]
     Active Substance: FREMANEZUMAB-VFRM
     Dosage: SHE WAS ON IT FOR OVER A YEAR AND STOPPED IN IN NOVEMBER
     Route: 065
  2. AJOVY [Suspect]
     Active Substance: FREMANEZUMAB-VFRM

REACTIONS (4)
  - Joint swelling [Recovering/Resolving]
  - Joint swelling [Recovering/Resolving]
  - Muscular weakness [Recovering/Resolving]
  - Product substitution issue [Unknown]
